FAERS Safety Report 13387324 (Version 1)
Quarter: 2017Q1

REPORT INFORMATION
  Report Type: Spontaneous
  Country: US (occurrence: US)
  Receive Date: 20170330
  Receipt Date: 20170330
  Transmission Date: 20170429
  Serious: No
  Sender: FDA-Public Use
  Company Number: US-ELI_LILLY_AND_COMPANY-US201607006275

PATIENT
  Sex: Male

DRUGS (4)
  1. CYMBALTA [Suspect]
     Active Substance: DULOXETINE HYDROCHLORIDE
     Indication: PAIN
     Dosage: UNK, UNKNOWN
     Route: 065
  2. CYMBALTA [Suspect]
     Active Substance: DULOXETINE HYDROCHLORIDE
     Indication: FIBROMYALGIA
     Dosage: 30 MG, BID
     Route: 065
  3. SAVELLA [Concomitant]
     Active Substance: MILNACIPRAN HYDROCHLORIDE
     Indication: FIBROMYALGIA
     Dosage: 30 MG, QD
     Route: 065
     Dates: start: 201301
  4. SAVELLA [Concomitant]
     Active Substance: MILNACIPRAN HYDROCHLORIDE
     Dosage: 30 MG, BID
     Route: 048
     Dates: start: 201306

REACTIONS (15)
  - Confusional state [Unknown]
  - Drug ineffective [Unknown]
  - Dysphoria [Unknown]
  - Affect lability [Unknown]
  - Eye pruritus [Unknown]
  - Lethargy [Unknown]
  - Sensory disturbance [Unknown]
  - Vision blurred [Unknown]
  - Anxiety [Unknown]
  - Insomnia [Unknown]
  - Depressed mood [Unknown]
  - Paraesthesia [Unknown]
  - Eye pain [Unknown]
  - Drug withdrawal syndrome [Unknown]
  - Poor quality sleep [Unknown]
